FAERS Safety Report 9018778 (Version 6)
Quarter: 2013Q1

REPORT INFORMATION
  Report Type: Report from Study
  Country: US (occurrence: US)
  Receive Date: 20130118
  Receipt Date: 20130311
  Transmission Date: 20140127
  Serious: Yes (Death, Life-Threatening, Hospitalization, Other)
  Sender: FDA-Public Use
  Company Number: US-ACTELION-A-US2013-77483

PATIENT
  Age: 53 Year
  Sex: Female

DRUGS (6)
  1. TRACLEER [Suspect]
     Indication: PULMONARY ARTERIAL HYPERTENSION
     Dosage: 125 MG, BID
     Route: 048
     Dates: start: 201108, end: 20130304
  2. TRACLEER [Suspect]
     Dosage: UNK UNK
     Route: 048
     Dates: start: 20110913
  3. VENTAVIS [Suspect]
     Indication: PULMONARY ARTERIAL HYPERTENSION
     Dosage: 2.5 ?G, Q3 HR WHILE AWAKE
     Route: 055
     Dates: start: 20120618, end: 20130304
  4. SILDENAFIL [Concomitant]
  5. COUMADIN [Concomitant]
  6. ASPIRIN [Concomitant]

REACTIONS (8)
  - Gastrointestinal haemorrhage [Fatal]
  - Fluid overload [Not Recovered/Not Resolved]
  - Renal disorder [Recovering/Resolving]
  - Hepatic steatosis [Not Recovered/Not Resolved]
  - Haemodialysis [Not Recovered/Not Resolved]
  - Treatment noncompliance [Not Recovered/Not Resolved]
  - Obesity [Not Recovered/Not Resolved]
  - Homeless [Unknown]
